FAERS Safety Report 11415770 (Version 1)
Quarter: 2015Q3

REPORT INFORMATION
  Report Type: Spontaneous
  Country: US (occurrence: None)
  Receive Date: 20150824
  Receipt Date: 20150824
  Transmission Date: 20151125
  Serious: Yes (Hospitalization)
  Sender: FDA-Public Use
  Company Number: None

PATIENT
  Age: 53 Year
  Sex: Male
  Weight: 83.2 kg

DRUGS (5)
  1. RANIBIZUMAB [Suspect]
     Active Substance: RANIBIZUMAB
     Indication: DIABETIC RETINAL OEDEMA
     Dosage: 0.05ML  MONTHLY  INTRAVITREAL
     Dates: start: 20140210
  2. LISINOPRIL. [Concomitant]
     Active Substance: LISINOPRIL
  3. GABAPENTIN. [Concomitant]
     Active Substance: GABAPENTIN
  4. FUROSEMIDE. [Concomitant]
     Active Substance: FUROSEMIDE
  5. METFORMIN [Concomitant]
     Active Substance: METFORMIN HYDROCHLORIDE

REACTIONS (2)
  - Blood pressure increased [None]
  - Treatment noncompliance [None]

NARRATIVE: CASE EVENT DATE: 20150503
